FAERS Safety Report 24966428 (Version 3)
Quarter: 2025Q2

REPORT INFORMATION
  Report Type: Spontaneous
  Country: US (occurrence: US)
  Receive Date: 20250213
  Receipt Date: 20250606
  Transmission Date: 20250717
  Serious: No
  Sender: VERTEX
  Company Number: US-VERTEX PHARMACEUTICALS-2025-002164

PATIENT

DRUGS (2)
  1. TRIKAFTA [Suspect]
     Active Substance: ELEXACAFTOR\IVACAFTOR\TEZACAFTOR
     Indication: Cystic fibrosis
     Route: 048
     Dates: start: 2019
  2. TRIKAFTA [Suspect]
     Active Substance: ELEXACAFTOR\IVACAFTOR\TEZACAFTOR
     Dosage: ORANGE PILL IN PM; NO 150MG IVA PILL
     Route: 048

REACTIONS (5)
  - Fatigue [Recovering/Resolving]
  - Brain fog [Recovering/Resolving]
  - Feeling abnormal [Unknown]
  - Product dose omission issue [Unknown]
  - Insurance issue [Unknown]
